FAERS Safety Report 23898502 (Version 1)
Quarter: 2024Q2

REPORT INFORMATION
  Report Type: Spontaneous
  Country: GB (occurrence: GB)
  Receive Date: 20240525
  Receipt Date: 20240525
  Transmission Date: 20240716
  Serious: Yes (Hospitalization, Other)
  Sender: FDA-Public Use
  Company Number: GB-ABBVIE-5767845

PATIENT
  Age: 32 Year
  Sex: Male

DRUGS (3)
  1. UPADACITINIB [Suspect]
     Active Substance: UPADACITINIB
     Indication: Crohn^s disease
     Route: 048
     Dates: start: 2024, end: 20240419
  2. UPADACITINIB [Suspect]
     Active Substance: UPADACITINIB
     Indication: Crohn^s disease
     Route: 048
     Dates: start: 2024, end: 2024
  3. UPADACITINIB [Suspect]
     Active Substance: UPADACITINIB
     Indication: Crohn^s disease
     Route: 048
     Dates: start: 20231026, end: 2024

REACTIONS (10)
  - Sepsis [Unknown]
  - Vascular device occlusion [Unknown]
  - Hypercoagulation [Unknown]
  - Crohn^s disease [Unknown]
  - Subclavian vein thrombosis [Unknown]
  - Thrombosis [Unknown]
  - Subclavian vein occlusion [Unknown]
  - Jugular vein occlusion [Unknown]
  - Vena cava thrombosis [Unknown]
  - Subclavian vein occlusion [Unknown]

NARRATIVE: CASE EVENT DATE: 20240101
